FAERS Safety Report 5619451-2 (Version None)
Quarter: 2008Q1

REPORT INFORMATION
  Report Type: 
  Country: None (occurrence: None)
  Receive Date: 20080109
  Receipt Date: 20070809
  Transmission Date: 20080703
  Serious: Yes (Life-Threatening, Hospitalization, Other)
  Sender: FDA-Public Use
  Company Number: WAES 0708USA02152

PATIENT
  Age: 67 Year
  Sex: Female
  Weight: 85.2762 kg

DRUGS (8)
  1. ZETIA [Suspect]
     Indication: HYPERCHOLESTEROLAEMIA
     Dosage: 10 MG/DAILY/PO
     Route: 048
     Dates: start: 20040801, end: 20061201
  2. AVANDIA [Concomitant]
  3. HYDRODIURIL [Concomitant]
  4. LIPITOR [Concomitant]
  5. PRINIVIL [Concomitant]
  6. TOPROL-XL [Concomitant]
  7. GLIPIZIDE [Concomitant]
  8. METFORMIN HCL [Concomitant]

REACTIONS (1)
  - RHABDOMYOLYSIS [None]
